FAERS Safety Report 9444265 (Version 2)
Quarter: 2013Q3

REPORT INFORMATION
  Report Type: Report from Study
  Country: US (occurrence: US)
  Receive Date: 20130807
  Receipt Date: 20130920
  Transmission Date: 20140515
  Serious: Yes (Other)
  Sender: FDA-Public Use
  Company Number: PHEH2013US016537

PATIENT
  Age: 87 Year
  Sex: Male

DRUGS (2)
  1. EXELON PATCH [Suspect]
     Indication: DEMENTIA ALZHEIMER^S TYPE
     Dosage: 4.6 MG, DAILY
     Route: 062
     Dates: start: 20130301, end: 20130626
  2. ARICEPT [Concomitant]
     Dosage: UNK UKN, UNK

REACTIONS (6)
  - Brain neoplasm [Unknown]
  - Malaise [Unknown]
  - Gait disturbance [Unknown]
  - Agitation [Unknown]
  - Headache [Unknown]
  - Drug ineffective [Unknown]
